FAERS Safety Report 10380281 (Version 3)
Quarter: 2014Q4

REPORT INFORMATION
  Report Type: Spontaneous
  Country: US (occurrence: US)
  Receive Date: 20140813
  Receipt Date: 20141020
  Transmission Date: 20150528
  Serious: Yes (Hospitalization, Other)
  Sender: FDA-Public Use
  Company Number: US-UCBSA-2014008270

PATIENT
  Sex: Male
  Weight: 100 kg

DRUGS (6)
  1. DEPAKOTE [Concomitant]
     Active Substance: DIVALPROEX SODIUM
     Indication: SEIZURE
     Dosage: UNK
  2. DEPAKOTE [Concomitant]
     Active Substance: DIVALPROEX SODIUM
     Dosage: 1750 MG
  3. DEPAKOTE [Concomitant]
     Active Substance: DIVALPROEX SODIUM
     Dosage: 1000MG IN AM AND 1000 MG IN PM
     Route: 048
     Dates: start: 2014
  4. EFFEXOR [Concomitant]
     Active Substance: VENLAFAXINE HYDROCHLORIDE
     Indication: PRODUCT USED FOR UNKNOWN INDICATION
     Dosage: 75 MG, ONCE DAILY (QD), 1 CAPSULE WITH FOOD
     Route: 048
  5. LORAZEPAM. [Concomitant]
     Active Substance: LORAZEPAM
     Indication: SEIZURE
     Dosage: 1 MG, TWICE DAY AS NEEDED
     Route: 048
  6. KEPPRA XR [Suspect]
     Active Substance: LEVETIRACETAM
     Indication: SEIZURE
     Dosage: 1500 MG, 2X/DAY (BID) (500MG),3 TABS IN AM AND 3 TABS IN PM
     Route: 048
     Dates: start: 2008

REACTIONS (5)
  - Hemiparesis [Recovering/Resolving]
  - Inappropriate schedule of drug administration [Unknown]
  - Neoplasm recurrence [Recovering/Resolving]
  - Seizure [Recovered/Resolved]
  - Speech disorder [Recovering/Resolving]

NARRATIVE: CASE EVENT DATE: 2008
